FAERS Safety Report 9041302 (Version 1)
Quarter: 2013Q1

REPORT INFORMATION
  Report Type: Spontaneous
  Country: US (occurrence: None)
  Receive Date: 20130114
  Receipt Date: 20130114
  Transmission Date: 20140127
  Serious: Yes (Other)
  Sender: FDA-Public Use
  Company Number: TPA2012A09677

PATIENT
  Age: 66 Year
  Sex: Male
  Weight: 74.84 kg

DRUGS (4)
  1. ACTOS (PIOGLITAZONE HYDROCHLORIDE) [Suspect]
     Indication: TYPE 2 DIABETES MELLITUS
     Dates: start: 20091129, end: 20100702
  2. METFORMIN (METFORMIN) [Concomitant]
  3. DIABETA (GLIBENCLAMIDE) [Concomitant]
  4. AVANDIA (ROSIGLITAZONE MALEATE) [Concomitant]

REACTIONS (2)
  - Bladder cancer stage III [None]
  - Haematuria [None]
